FAERS Safety Report 11913053 (Version 1)
Quarter: 2016Q1

REPORT INFORMATION
  Report Type: Report from Study
  Country: JP (occurrence: JP)
  Receive Date: 20160113
  Receipt Date: 20160113
  Transmission Date: 20160526
  Serious: Yes (Death, Life-Threatening, Hospitalization, Other)
  Sender: FDA-Public Use
  Company Number: PHHY2016JP001474

PATIENT
  Age: 67 Year
  Sex: Female
  Weight: 47.3 kg

DRUGS (8)
  1. GENERIC LETROZOLE [Suspect]
     Active Substance: LETROZOLE
     Indication: INVASIVE DUCTAL BREAST CARCINOMA
     Dosage: UNK
     Route: 065
     Dates: start: 20150728
  2. DENOTAS [Concomitant]
     Active Substance: CALCIUM CARBONATE\CHOLECALCIFEROL\MAGNESIUM CARBONATE
     Indication: PRODUCT USED FOR UNKNOWN INDICATION
     Route: 065
  3. RANMARK [Concomitant]
     Active Substance: DENOSUMAB
     Indication: PRODUCT USED FOR UNKNOWN INDICATION
     Dosage: UNK
     Route: 065
     Dates: start: 20150721
  4. MEDICON (DEXTROMETHORPHAN HYDROBROMIDE) [Concomitant]
     Active Substance: DEXTROMETHORPHAN HYDROBROMIDE
     Indication: PRODUCT USED FOR UNKNOWN INDICATION
     Route: 065
  5. EURAX [Concomitant]
     Active Substance: CROTAMITON
     Indication: RASH MACULO-PAPULAR
     Dosage: UNK
     Route: 065
     Dates: start: 20150831
  6. WHITE PETROLATUM [Concomitant]
     Active Substance: PETROLATUM
     Indication: PRODUCT USED FOR UNKNOWN INDICATION
     Dosage: UNK
     Route: 065
     Dates: start: 20150831
  7. ZOLPIDEM TARTRATE. [Concomitant]
     Active Substance: ZOLPIDEM TARTRATE
     Indication: INSOMNIA
     Dosage: UNK
     Route: 065
     Dates: start: 20150902
  8. MORPHINE HYDROCHLORIDE [Concomitant]
     Active Substance: MORPHINE HYDROCHLORIDE
     Indication: PRODUCT USED FOR UNKNOWN INDICATION
     Route: 065

REACTIONS (27)
  - Malignant neoplasm progression [Fatal]
  - Cardiac failure [Not Recovered/Not Resolved]
  - Atelectasis [Unknown]
  - Blood urea decreased [Unknown]
  - White blood cell count increased [Unknown]
  - Rash maculo-papular [Not Recovered/Not Resolved]
  - Dry eye [Not Recovered/Not Resolved]
  - Vomiting [Not Recovered/Not Resolved]
  - Constipation [Not Recovered/Not Resolved]
  - Pneumonia [Unknown]
  - Blood beta-D-glucan decreased [Unknown]
  - Insomnia [Not Recovered/Not Resolved]
  - Malignant pleural effusion [Unknown]
  - Pleural effusion [Unknown]
  - Invasive ductal breast carcinoma [Fatal]
  - Dehydration [Recovered/Resolved]
  - Blood lactate dehydrogenase increased [Unknown]
  - Haemoglobin decreased [Unknown]
  - Malaise [Not Recovered/Not Resolved]
  - Vitamin B complex deficiency [Not Recovered/Not Resolved]
  - Blood chloride decreased [Unknown]
  - C-reactive protein increased [Unknown]
  - Cell marker increased [Unknown]
  - Dyspnoea [Unknown]
  - Brain natriuretic peptide increased [Unknown]
  - Cardiac disorder [Unknown]
  - Blood sodium decreased [Unknown]

NARRATIVE: CASE EVENT DATE: 20150831
